FAERS Safety Report 23562252 (Version 1)
Quarter: 2024Q1

REPORT INFORMATION
  Report Type: Report from Study
  Country: US (occurrence: US)
  Receive Date: 20240226
  Receipt Date: 20240226
  Transmission Date: 20240410
  Serious: Yes (Hospitalization)
  Sender: FDA-Public Use
  Company Number: US-ABBVIE-5643281

PATIENT
  Sex: Female

DRUGS (2)
  1. VENCLEXTA [Suspect]
     Active Substance: VENETOCLAX
     Indication: Acute myelomonocytic leukaemia
     Dosage: DAILY DOSE: 400 MG
     Route: 048
     Dates: end: 2024
  2. VENCLEXTA [Suspect]
     Active Substance: VENETOCLAX
     Indication: Acute myelomonocytic leukaemia
     Dosage: DAILY DOSE: 400 MG
     Route: 048
     Dates: start: 2024

REACTIONS (2)
  - White blood cell count abnormal [Not Recovered/Not Resolved]
  - Infection [Not Recovered/Not Resolved]
